FAERS Safety Report 16986046 (Version 1)
Quarter: 2019Q4

REPORT INFORMATION
  Report Type: Spontaneous
  Country: US (occurrence: US)
  Receive Date: 20190917
  Receipt Date: 20190917
  Transmission Date: 20200122
  Serious: Yes (Disabling, Other)
  Sender: FDA-Public Use
  Company Number: None

PATIENT
  Age: 58 Year
  Sex: Female
  Weight: 68.04 kg

DRUGS (1)
  1. OXYCOD/ACETAM 10-325 TAB RHO [Suspect]
     Active Substance: ACETAMINOPHEN\OXYCODONE HYDROCHLORIDE
     Indication: BREAST PAIN
     Route: 048
     Dates: start: 20190830

REACTIONS (2)
  - Product substitution issue [None]
  - Inadequate analgesia [None]

NARRATIVE: CASE EVENT DATE: 20190830
